FAERS Safety Report 17982114 (Version 4)
Quarter: 2022Q2

REPORT INFORMATION
  Report Type: Report from Study
  Country: US (occurrence: US)
  Receive Date: 20200706
  Receipt Date: 20220604
  Transmission Date: 20220720
  Serious: No
  Sender: FDA-Public Use
  Company Number: US-NOVARTISTESTPH-NVSC2020US185882

PATIENT
  Age: 59 Year
  Sex: Male

DRUGS (4)
  1. ENTRESTO [Suspect]
     Active Substance: SACUBITRIL\VALSARTAN
     Indication: Product used for unknown indication
     Dosage: 1 DF, BID, 24-26
     Route: 048
  2. ENTRESTO [Suspect]
     Active Substance: SACUBITRIL\VALSARTAN
     Indication: Cardiac failure
     Dosage: 2 DF, BID, 24-26
     Route: 048
     Dates: start: 20200608
  3. ENTRESTO [Suspect]
     Active Substance: SACUBITRIL\VALSARTAN
     Dosage: 49.51 MG, TID
     Route: 048
     Dates: start: 202003
  4. COREG [Suspect]
     Active Substance: CARVEDILOL
     Indication: Product used for unknown indication
     Dosage: 12.5 MG, BID
     Route: 065

REACTIONS (16)
  - Headache [Unknown]
  - Diarrhoea [Unknown]
  - Dizziness [Unknown]
  - Swollen tongue [Unknown]
  - Feeling abnormal [Unknown]
  - Visual impairment [Unknown]
  - Dehydration [Unknown]
  - Infection [Unknown]
  - Insomnia [Unknown]
  - Tinnitus [Unknown]
  - Ear pain [Unknown]
  - Joint swelling [Unknown]
  - Hypoaesthesia [Unknown]
  - Dyspnoea [Unknown]
  - Swelling [Unknown]
  - Upper limb fracture [Unknown]

NARRATIVE: CASE EVENT DATE: 20200301
